FAERS Safety Report 7610293-5 (Version None)
Quarter: 2011Q3

REPORT INFORMATION
  Report Type: 
  Country: None (occurrence: None)
  Receive Date: 20110706
  Receipt Date: 20110621
  Transmission Date: 20111222
  Serious: Yes (Congenital Anomaly, Other)
  Sender: FDA-Public Use
  Company Number: AUR-APL-2011-02041

PATIENT
  Sex: Female
  Weight: 3 kg

DRUGS (2)
  1. FEMIBION (CALCIUM) [Concomitant]
  2. PAROXETINE HCL [Suspect]
     Indication: DEPRESSION
     Dosage: SEE IMAGE
     Route: 064
     Dates: start: 20090707, end: 20100317

REACTIONS (4)
  - MATERNAL DRUGS AFFECTING FOETUS [None]
  - HYPERBILIRUBINAEMIA NEONATAL [None]
  - HAEMANGIOMA CONGENITAL [None]
  - PREMATURE BABY [None]
